FAERS Safety Report 18632247 (Version 1)
Quarter: 2020Q4

REPORT INFORMATION
  Report Type: Spontaneous
  Country: US (occurrence: US)
  Receive Date: 20201217
  Receipt Date: 20201217
  Transmission Date: 20210114
  Serious: No
  Sender: FDA-Public Use
  Company Number: US-LUPIN PHARMACEUTICALS INC.-2020-10164

PATIENT
  Age: 63 Year

DRUGS (4)
  1. TACROLIMUS. [Suspect]
     Active Substance: TACROLIMUS
     Indication: DERMATITIS ATOPIC
     Dosage: UNK
     Route: 065
  2. TRIAMCINOLONE [Suspect]
     Active Substance: TRIAMCINOLONE
     Indication: DERMATITIS ATOPIC
     Dosage: UNK
     Route: 065
  3. BUTORPHANOL [Concomitant]
     Active Substance: BUTORPHANOL
     Indication: DERMATITIS ATOPIC
     Dosage: 10 MILLIGRAM PER MILLILITRE, PRN-UPTO 4 HR
     Route: 045
  4. MYCOPHENOLIC ACID. [Suspect]
     Active Substance: MYCOPHENOLIC ACID
     Indication: DERMATITIS ATOPIC
     Dosage: UNK (500/250 MG)
     Route: 065

REACTIONS (1)
  - Treatment failure [Unknown]
